FAERS Safety Report 11030300 (Version 1)
Quarter: 2015Q2

REPORT INFORMATION
  Report Type: Spontaneous
  Country: ES (occurrence: ES)
  Receive Date: 20150415
  Receipt Date: 20150415
  Transmission Date: 20150821
  Serious: Yes (Other)
  Sender: FDA-Public Use
  Company Number: PHHY2015ES043891

PATIENT
  Age: 65 Year
  Sex: Female

DRUGS (1)
  1. FLUVASTATIN [Suspect]
     Active Substance: FLUVASTATIN SODIUM
     Indication: HYPERCHOLESTEROLAEMIA
     Route: 065

REACTIONS (7)
  - Myalgia [Unknown]
  - Hypokinesia [Unknown]
  - Joint contracture [Unknown]
  - Scleroderma [Unknown]
  - Skin swelling [Unknown]
  - Myositis [Unknown]
  - Eosinophilic fasciitis [Unknown]
